FAERS Safety Report 6661112-5 (Version None)
Quarter: 2010Q1

REPORT INFORMATION
  Report Type: 
  Country: None (occurrence: None)
  Receive Date: 20100331
  Receipt Date: 20100322
  Transmission Date: 20100710
  Serious: Yes (Hospitalization)
  Sender: FDA-Public Use
  Company Number: DE-ROCHE-693676

PATIENT
  Age: 78 Year
  Sex: Male
  Weight: 72.5 kg

DRUGS (7)
  1. BEVACIZUMAB [Suspect]
     Indication: RENAL CELL CARCINOMA
     Route: 065
  2. INTERFERON ALFA [Suspect]
     Indication: RENAL CELL CARCINOMA
     Dosage: DOSE: 6 MU.
     Route: 058
     Dates: start: 20090701
  3. METOPROLOL TARTRATE [Concomitant]
     Indication: HYPERTENSION
     Dates: start: 20010101
  4. ACETYLCYSTEINE [Concomitant]
     Dates: start: 20090201
  5. BETAMANN [Concomitant]
     Indication: GLAUCOMA
     Dates: start: 19780101
  6. ASPIRIN [Concomitant]
     Indication: THROMBOSIS PROPHYLAXIS
     Dates: start: 20091007
  7. AZOPT [Concomitant]
     Indication: GLAUCOMA
     Dates: start: 20091001

REACTIONS (1)
  - CIRCULATORY COLLAPSE [None]
